FAERS Safety Report 4657081-X (Version None)
Quarter: 2005Q2

REPORT INFORMATION
  Report Type: 
  Country: None (occurrence: None)
  Receive Date: 20050506
  Receipt Date: 20050422
  Transmission Date: 20051028
  Serious: Yes (Hospitalization)
  Sender: FDA-Public Use
  Company Number: L05-USA-01563-01

PATIENT
  Age: 61 Year
  Sex: Female

DRUGS (4)
  1. PROPRANOLOL [Suspect]
     Indication: INTENTION TREMOR
     Dosage: 10 MG QID
  2. VERAPAMIL [Suspect]
     Dosage: 360 MG QD
  3. CAPTOPRIL [Suspect]
     Dosage: 25 MG BID
  4. FUROSEMIDE [Suspect]

REACTIONS (12)
  - ASTHENIA [None]
  - DIARRHOEA [None]
  - DIZZINESS [None]
  - DYSPNOEA [None]
  - EXTRASYSTOLES [None]
  - FATIGUE [None]
  - HYPERHIDROSIS [None]
  - NAUSEA [None]
  - NODAL RHYTHM [None]
  - PALPITATIONS [None]
  - SINUS BRADYCARDIA [None]
  - VOMITING [None]
